FAERS Safety Report 19082553 (Version 2)
Quarter: 2021Q4

REPORT INFORMATION
  Report Type: Spontaneous
  Country: IL (occurrence: IL)
  Receive Date: 20210401
  Receipt Date: 20211013
  Transmission Date: 20220304
  Serious: Yes (Other)
  Sender: FDA-Public Use
  Company Number: IL-MLMSERVICE-20210315-2781063-1

PATIENT
  Age: 21 Year
  Sex: Male
  Weight: 76 kg

DRUGS (14)
  1. RIBAVIRIN [Suspect]
     Active Substance: RIBAVIRIN
     Indication: Respiratory syncytial virus infection
     Dosage: 600 MG IN 3 DIVIDED DOSES DAILY
     Route: 048
  2. RIBAVIRIN [Suspect]
     Active Substance: RIBAVIRIN
     Indication: Upper respiratory tract infection
  3. LEVOFLOXACIN [Concomitant]
     Active Substance: LEVOFLOXACIN
     Indication: Respiratory syncytial virus infection
     Route: 042
  4. LEVOFLOXACIN [Concomitant]
     Active Substance: LEVOFLOXACIN
     Indication: Upper respiratory tract infection
  5. CYCLOSPORINE [Concomitant]
     Active Substance: CYCLOSPORINE
     Indication: Respiratory syncytial virus infection
     Route: 048
  6. PREDNISONE [Concomitant]
     Active Substance: PREDNISONE
     Indication: Respiratory syncytial virus infection
     Route: 048
  7. VORICONAZOLE [Concomitant]
     Active Substance: VORICONAZOLE
     Indication: Respiratory syncytial virus infection
     Route: 048
  8. ACYCLOVIR [Concomitant]
     Active Substance: ACYCLOVIR
     Indication: Respiratory syncytial virus infection
     Route: 048
  9. SULFAMETHOXAZOLE\TRIMETHOPRIM [Concomitant]
     Active Substance: SULFAMETHOXAZOLE\TRIMETHOPRIM
     Indication: Respiratory syncytial virus infection
     Route: 048
  10. URSODIOL [Concomitant]
     Active Substance: URSODIOL
     Indication: Respiratory syncytial virus infection
     Route: 048
  11. RAMIPRIL [Concomitant]
     Active Substance: RAMIPRIL
     Indication: Respiratory syncytial virus infection
     Route: 048
  12. BISOPROLOL [Concomitant]
     Active Substance: BISOPROLOL
     Indication: Respiratory syncytial virus infection
     Route: 048
  13. CALCIUM CARBONATE [Concomitant]
     Active Substance: CALCIUM CARBONATE
     Indication: Respiratory syncytial virus infection
     Route: 048
  14. VITAMIN D [Concomitant]
     Active Substance: VITAMIN D NOS
     Indication: Respiratory syncytial virus infection
     Route: 048

REACTIONS (2)
  - Acute kidney injury [Recovered/Resolved]
  - Hyperuricaemia [Recovered/Resolved]
